FAERS Safety Report 6692507-1 (Version None)
Quarter: 2010Q2

REPORT INFORMATION
  Report Type: 
  Country: None (occurrence: None)
  Receive Date: 20100422
  Receipt Date: 20100412
  Transmission Date: 20101027
  Serious: Yes (Other)
  Sender: FDA-Public Use
  Company Number: B0646607A

PATIENT
  Sex: Female

DRUGS (3)
  1. ARIXTRA [Suspect]
     Indication: DEEP VEIN THROMBOSIS
     Dosage: 7.5MGML PER DAY
     Route: 058
     Dates: start: 20090713, end: 20090714
  2. LEVOTHYROX [Concomitant]
  3. LESCOL [Concomitant]

REACTIONS (4)
  - FLUSHING [None]
  - LOCALISED OEDEMA [None]
  - RESPIRATORY DISORDER [None]
  - URTICARIA [None]
